FAERS Safety Report 5406331-0 (Version None)
Quarter: 2007Q3

REPORT INFORMATION
  Report Type: 
  Country: None (occurrence: None)
  Receive Date: 20070806
  Receipt Date: 20070801
  Transmission Date: 20080115
  Serious: Yes (Life-Threatening)
  Sender: FDA-Public Use
  Company Number: US-ASTRAZENECA-2007UW14200

PATIENT
  Age: 3 Year
  Sex: Male
  Weight: 13.6 kg

DRUGS (6)
  1. PULMICORT RESPULES [Suspect]
     Indication: ASTHMA
     Route: 055
     Dates: start: 20060101, end: 20070531
  2. ALBUTEROL [Concomitant]
  3. SINGULAIR [Concomitant]
     Indication: ASTHMA
     Route: 048
     Dates: start: 20060101
  4. ZYRTEC [Concomitant]
     Indication: HYPERSENSITIVITY
     Route: 048
     Dates: start: 20060101
  5. ZYRTEC [Concomitant]
     Indication: ECZEMA
     Route: 048
     Dates: start: 20060101
  6. PROVENTIL [Concomitant]
     Indication: ASTHMA
     Route: 055
     Dates: start: 20060101

REACTIONS (2)
  - ANAPHYLACTIC REACTION [None]
  - ASTHMA [None]
